FAERS Safety Report 9060882 (Version 1)
Quarter: 2013Q1

REPORT INFORMATION
  Report Type: Spontaneous
  Country: GB (occurrence: GB)
  Receive Date: 20130204
  Receipt Date: 20130204
  Transmission Date: 20140127
  Serious: Yes (Disabling)
  Sender: FDA-Public Use
  Company Number: GB-EISAI INC-E2007-01034-SPO-GB

PATIENT
  Age: 49 Year
  Sex: Female

DRUGS (4)
  1. FYCOMPA [Suspect]
     Indication: COMPLEX PARTIAL SEIZURES
     Route: 048
     Dates: start: 20130116
  2. PHENYTOIN [Concomitant]
     Indication: COMPLEX PARTIAL SEIZURES
     Route: 048
  3. PREGABALIN [Concomitant]
     Indication: COMPLEX PARTIAL SEIZURES
     Route: 048
  4. ZONISAMIDE [Concomitant]
     Indication: COMPLEX PARTIAL SEIZURES
     Route: 048

REACTIONS (3)
  - Insomnia [Unknown]
  - Poor quality sleep [Not Recovered/Not Resolved]
  - Complex partial seizures [Not Recovered/Not Resolved]
